FAERS Safety Report 17172394 (Version 2)
Quarter: 2020Q1

REPORT INFORMATION
  Report Type: Spontaneous
  Country: US (occurrence: US)
  Receive Date: 20191219
  Receipt Date: 20200224
  Transmission Date: 20200409
  Serious: Yes (Other)
  Sender: FDA-Public Use
  Company Number: US-BAYER-2019-225311

PATIENT
  Age: 33 Year
  Sex: Male

DRUGS (4)
  1. ALKA-SELTZER PLUS DAY AND NIGHT SEVERE COLD AND FLU [Suspect]
     Active Substance: ACETAMINOPHEN\DEXTROMETHORPHAN HYDROBROMIDE\DOXYLAMINE SUCCINATE\GUAIFENESIN\PHENYLEPHRINE HYDROCHLORIDE
     Indication: ALLERGIC RESPIRATORY SYMPTOM
     Dosage: UNK (1 SACHET IN A COFFEE CUP WITH WATER; 8-10OZ CUP)
     Dates: start: 20190921, end: 20190921
  2. ALKA-SELTZER PLUS DAY SEVERE COLD, COUGH AND FLU [Suspect]
     Active Substance: ACETAMINOPHEN\DEXTROMETHORPHAN HYDROBROMIDE\PHENYLEPHRINE HYDROCHLORIDE
     Indication: ALLERGIC RESPIRATORY SYMPTOM
     Dosage: UNK (1 SACHET IN A COFFEE CUP WITH WATER; 8-10OZ CUP)
     Route: 048
     Dates: start: 20190921, end: 20190921
  3. ALKA-SELTZER PLUS DAY AND NIGHT SEVERE COLD AND FLU [Suspect]
     Active Substance: ACETAMINOPHEN\DEXTROMETHORPHAN HYDROBROMIDE\DOXYLAMINE SUCCINATE\GUAIFENESIN\PHENYLEPHRINE HYDROCHLORIDE
     Indication: NASOPHARYNGITIS
  4. ALKA-SELTZER PLUS DAY SEVERE COLD, COUGH AND FLU [Suspect]
     Active Substance: ACETAMINOPHEN\DEXTROMETHORPHAN HYDROBROMIDE\PHENYLEPHRINE HYDROCHLORIDE
     Indication: NASOPHARYNGITIS

REACTIONS (4)
  - Expired product administered [Unknown]
  - Seizure [Unknown]
  - Blood pressure decreased [Unknown]
  - Product packaging issue [None]

NARRATIVE: CASE EVENT DATE: 201909
